FAERS Safety Report 21369218 (Version 1)
Quarter: 2022Q3

REPORT INFORMATION
  Report Type: Spontaneous
  Country: GR (occurrence: GR)
  Receive Date: 20220923
  Receipt Date: 20220923
  Transmission Date: 20221027
  Serious: Yes (Other)
  Sender: FDA-Public Use
  Company Number: None

PATIENT

DRUGS (1)
  1. CYCLOGYL [Suspect]
     Active Substance: CYCLOPENTOLATE HYDROCHLORIDE
     Indication: Ophthalmological examination
     Dosage: 1 DRP, TID (ONE DROP IN THE RIGHT AND ONE IN THE LEFT EYE, 3 TIMES (EVERY 10 MINUTES) BEFORE THE EXA
     Route: 047
     Dates: start: 20210920, end: 20210920

REACTIONS (3)
  - Confusional state [Recovered/Resolved]
  - Incoherent [Recovered/Resolved]
  - Restlessness [Recovered/Resolved]

NARRATIVE: CASE EVENT DATE: 20210920
